FAERS Safety Report 10093891 (Version 1)
Quarter: 2014Q2

REPORT INFORMATION
  Report Type: Spontaneous
  Country: US (occurrence: US)
  Receive Date: 20140421
  Receipt Date: 20140421
  Transmission Date: 20141212
  Serious: No
  Sender: FDA-Public Use
  Company Number: US-SA-2014SA027963

PATIENT
  Age: 90 Year
  Sex: Female

DRUGS (14)
  1. ALLEGRA [Suspect]
     Indication: RHINORRHOEA
     Dosage: TAKEN FROM 3 DAYS
     Route: 048
     Dates: start: 20140225
  2. SYNTHROID [Concomitant]
     Route: 065
  3. DIOVAN [Concomitant]
     Route: 065
  4. AMLODIPINE [Concomitant]
     Route: 065
  5. ALL OTHER THERAPEUTIC PRODUCTS [Concomitant]
     Route: 065
  6. TRAVATAN [Concomitant]
     Route: 065
  7. CRESTOR [Concomitant]
     Route: 065
  8. XARELTO [Concomitant]
     Route: 065
  9. TYLENOL [Concomitant]
     Route: 065
  10. MSM [Concomitant]
  11. VITAMIN B12 [Concomitant]
  12. VITAMIN D [Concomitant]
     Route: 065
  13. IRON [Concomitant]
     Route: 065
  14. ALL OTHER THERAPEUTIC PRODUCTS [Concomitant]
     Route: 065

REACTIONS (1)
  - Therapeutic response decreased [Unknown]
